FAERS Safety Report 11991803 (Version 1)
Quarter: 2016Q1

REPORT INFORMATION
  Report Type: Spontaneous
  Country: US (occurrence: US)
  Receive Date: 20160203
  Receipt Date: 20160203
  Transmission Date: 20160526
  Serious: No
  Sender: FDA-Public Use
  Company Number: US-JNJFOC-20160105450

PATIENT
  Age: 75 Year
  Sex: Male

DRUGS (2)
  1. SUDAFED 12 HOUR [Suspect]
     Active Substance: PSEUDOEPHEDRINE HYDROCHLORIDE
     Indication: PRODUCT USED FOR UNKNOWN INDICATION
     Dosage: 1 CAPLET EVERY 24 HOURS. (1 CAPLET ON 05-JAN AT 9PM AND ANOTHER CAPLET ON 6-JAN AT 4PM
     Route: 048
     Dates: start: 20160105, end: 20160106
  2. SUDAFED 12 HOUR [Suspect]
     Active Substance: PSEUDOEPHEDRINE HYDROCHLORIDE
     Route: 048

REACTIONS (3)
  - Inappropriate schedule of drug administration [Recovering/Resolving]
  - Off label use [Recovering/Resolving]
  - Urinary incontinence [Recovering/Resolving]

NARRATIVE: CASE EVENT DATE: 20160106
